FAERS Safety Report 7885347-9 (Version None)
Quarter: 2011Q4

REPORT INFORMATION
  Report Type: 
  Country: None (occurrence: None)
  Receive Date: 20111102
  Receipt Date: 20111025
  Transmission Date: 20120403
  Serious: Yes (Hospitalization)
  Sender: FDA-Public Use
  Company Number: VE-ELI_LILLY_AND_COMPANY-VE201110007742

PATIENT
  Age: 59 Year
  Sex: Female

DRUGS (2)
  1. FORTEO [Suspect]
     Indication: BONE DISORDER
     Dosage: 560 UG, QD
     Route: 058
     Dates: start: 20110301
  2. FORTEO [Suspect]
     Dosage: UNK
     Dates: start: 20111024

REACTIONS (6)
  - OVERDOSE [None]
  - OFF LABEL USE [None]
  - DISCOMFORT [None]
  - TACHYCARDIA [None]
  - INTENTIONAL DRUG MISUSE [None]
  - HYPERHIDROSIS [None]
